FAERS Safety Report 5368683-X (Version None)
Quarter: 2007Q2

REPORT INFORMATION
  Report Type: 
  Country: None (occurrence: None)
  Receive Date: 20070625
  Receipt Date: 20070319
  Transmission Date: 20071010
  Serious: No
  Sender: FDA-Public Use
  Company Number: US-BRISTOL-MYERS SQUIBB COMPANY-13718598

PATIENT
  Age: 84 Year
  Sex: Female
  Weight: 53 kg

DRUGS (3)
  1. ORENCIA [Suspect]
     Indication: RHEUMATOID ARTHRITIS
     Route: 042
     Dates: start: 20060201
  2. MOBIC [Suspect]
  3. ZOCOR [Concomitant]

REACTIONS (4)
  - HEADACHE [None]
  - MOUTH ULCERATION [None]
  - NAUSEA [None]
  - VOMITING [None]
